FAERS Safety Report 26194286 (Version 1)
Quarter: 2025Q4

REPORT INFORMATION
  Report Type: Spontaneous
  Country: US (occurrence: None)
  Receive Date: 20251224
  Receipt Date: 20251224
  Transmission Date: 20260117
  Serious: Yes (Hospitalization, Other)
  Sender: ENDO
  Company Number: US-ENDO USA, INC.-2025-002508

PATIENT
  Age: 70 Year
  Sex: Male

DRUGS (2)
  1. BUPRENORPHINE HYDROCHLORIDE [Suspect]
     Active Substance: BUPRENORPHINE HYDROCHLORIDE
     Indication: Physiotherapy
     Dosage: UNK UNKNOWN, UNKNOWN (RESTARTED)
     Route: 065
  2. AMPHETAMINE\DEXTROAMPHETAMINE [Suspect]
     Active Substance: AMPHETAMINE\DEXTROAMPHETAMINE
     Indication: Physiotherapy
     Dosage: UNK UNKNOWN, UNKNOWN
     Route: 065

REACTIONS (4)
  - Delirium [Recovered/Resolved]
  - Disease recurrence [Recovered/Resolved]
  - Fall [Recovered/Resolved]
  - Off label use [Recovered/Resolved]
